FAERS Safety Report 4771461-3 (Version None)
Quarter: 2005Q3

REPORT INFORMATION
  Report Type: 
  Country: None (occurrence: None)
  Receive Date: 20050915
  Receipt Date: 20050906
  Transmission Date: 20060218
  Serious: Yes (Other)
  Sender: FDA-Public Use
  Company Number: 2005124890

PATIENT
  Sex: Male
  Weight: 70.3075 kg

DRUGS (2)
  1. NORVASC [Suspect]
     Indication: BLOOD PRESSURE
     Dosage: 10 MG
  2. LIPITOR [Suspect]
     Indication: BLOOD CHOLESTEROL INCREASED

REACTIONS (7)
  - AORTIC OCCLUSION [None]
  - ASTHENIA [None]
  - INSOMNIA [None]
  - MUSCULAR WEAKNESS [None]
  - NOCTURIA [None]
  - POLLAKIURIA [None]
  - URINARY INCONTINENCE [None]
